FAERS Safety Report 12214439 (Version 3)
Quarter: 2016Q2

REPORT INFORMATION
  Report Type: Spontaneous
  Country: DE (occurrence: DE)
  Receive Date: 20160328
  Receipt Date: 20160520
  Transmission Date: 20160815
  Serious: Yes (Other)
  Sender: FDA-Public Use
  Company Number: DE-JNJFOC-20160322194

PATIENT
  Age: 73 Year
  Sex: Male

DRUGS (1)
  1. RISPERDAL [Suspect]
     Active Substance: RISPERIDONE
     Indication: PRODUCT USED FOR UNKNOWN INDICATION
     Dosage: 3 MONTHS AGO FOR 3-4 DAYS
     Route: 048

REACTIONS (2)
  - Dementia [Not Recovered/Not Resolved]
  - Parkinsonism [Not Recovered/Not Resolved]
